FAERS Safety Report 18930735 (Version 2)
Quarter: 2023Q2

REPORT INFORMATION
  Report Type: Spontaneous
  Country: JP (occurrence: JP)
  Receive Date: 20210223
  Receipt Date: 20230428
  Transmission Date: 20230721
  Serious: Yes (Other)
  Sender: FDA-Public Use
  Company Number: JP-PFIZER INC-2021083014

PATIENT
  Age: 73 Year
  Sex: Female
  Weight: 55.4 kg

DRUGS (8)
  1. VFEND [Interacting]
     Active Substance: VORICONAZOLE
     Indication: Infectious pleural effusion
     Dosage: 200 MG, 2X/DAY
     Route: 048
     Dates: start: 20210119
  2. RABEPRAZOLE [Concomitant]
     Active Substance: RABEPRAZOLE
     Dosage: 10 MG (1 TABLET), 1X/DAY
  3. SUCRALFATE [Concomitant]
     Active Substance: SUCRALFATE
     Dosage: 30 ML, DAILY (DIVIDED INTO 3 DOSES)
  4. LETROZOLE [Concomitant]
     Active Substance: LETROZOLE
     Dosage: 2.5 (UNIT UNKNOWN) (1 TABLET) ONCE A DAY
     Dates: end: 20210119
  5. ZETIA [Concomitant]
     Active Substance: EZETIMIBE
     Dosage: 10 MG (1 TABLET), 1X/DAY
  6. CARVEDILOL [Concomitant]
     Active Substance: CARVEDILOL
     Dosage: 10 MG (1 TABLET), 1X/DAY
  7. ELIQUIS [Concomitant]
     Active Substance: APIXABAN
     Dosage: 2.5 (UNIT UNKNOWN) (1 TABLET) TWICE A DAY
     Dates: end: 20210119
  8. PIRMENOL HYDROCHLORIDE [Concomitant]
     Active Substance: PIRMENOL HYDROCHLORIDE
     Dosage: 100 MG (1 CAPSULE), 2X/DAY

REACTIONS (3)
  - Drug interaction [Recovering/Resolving]
  - Hallucination, visual [Recovering/Resolving]
  - Photophobia [Recovering/Resolving]

NARRATIVE: CASE EVENT DATE: 20210121
